FAERS Safety Report 13040924 (Version 1)
Quarter: 2016Q4

REPORT INFORMATION
  Report Type: Other
  Country: None (occurrence: US)
  Receive Date: 20161219
  Receipt Date: 20161219
  Transmission Date: 20170207
  Serious: Yes (Other)
  Sender: FDA-Public Use
  Company Number: US-GUTHY-RENKER LLC-1060984

PATIENT
  Age: 53 Year
  Sex: Female

DRUGS (3)
  1. MULTIPLE UNDISCLOSED  ALLERGY MEDICATIONS [Concomitant]
  2. IT COSMETICS BYE BYE FOUNDATION WITH SPF 50+ [Suspect]
     Active Substance: TITANIUM DIOXIDE\ZINC OXIDE
     Indication: PROPHYLAXIS AGAINST SOLAR RADIATION
     Route: 061
     Dates: start: 20161117
  3. WEEKLY ALLERGY INJECTIONS, EPIPEN [Concomitant]

REACTIONS (5)
  - Rash [None]
  - Pruritus [None]
  - Dyspnoea [None]
  - Swelling face [Recovered/Resolved]
  - Hypersensitivity [None]

NARRATIVE: CASE EVENT DATE: 20161117
